FAERS Safety Report 9587135 (Version 1)
Quarter: 2013Q4

REPORT INFORMATION
  Report Type: Spontaneous
  Country: FR (occurrence: FR)
  Receive Date: 20131003
  Receipt Date: 20131003
  Transmission Date: 20140711
  Serious: Yes (Hospitalization)
  Sender: FDA-Public Use
  Company Number: FR-JNJFOC-20131001371

PATIENT
  Age: 87 Year
  Sex: Female

DRUGS (6)
  1. XARELTO [Suspect]
     Indication: PRODUCT USED FOR UNKNOWN INDICATION
     Route: 048
     Dates: start: 201305, end: 20130705
  2. CALCIPARINE [Suspect]
     Indication: PRODUCT USED FOR UNKNOWN INDICATION
     Route: 058
     Dates: start: 20130705
  3. MOPRAL [Concomitant]
     Route: 048
  4. LAROXYL [Concomitant]
     Route: 048
  5. ATACAND D [Concomitant]
     Route: 048
  6. PIASCLEDINE [Concomitant]
     Route: 048

REACTIONS (2)
  - Haematoma [Unknown]
  - Iron deficiency anaemia [Unknown]
